FAERS Safety Report 5986838-8 (Version None)
Quarter: 2008Q4

REPORT INFORMATION
  Report Type: 
  Country: None (occurrence: None)
  Receive Date: 20081209
  Receipt Date: 20080904
  Transmission Date: 20090506
  Serious: No
  Sender: FDA-Public Use
  Company Number: US-AMGEN-KDL305953

PATIENT
  Sex: Female

DRUGS (1)
  1. ENBREL [Suspect]
     Indication: MYOSITIS
     Route: 058
     Dates: start: 20010801

REACTIONS (5)
  - BLOOD CREATINE PHOSPHOKINASE INCREASED [None]
  - INJECTION SITE IRRITATION [None]
  - MUSCULOSKELETAL STIFFNESS [None]
  - OEDEMA PERIPHERAL [None]
  - PAIN [None]
